FAERS Safety Report 8536317 (Version 4)
Quarter: 2012Q4

REPORT INFORMATION
  Report Type: 
  Country: CA (occurrence: CA)
  Receive Date: 20120430
  Receipt Date: 20120918
  Transmission Date: 20130627
  Serious: Yes (Other)
  Sender: FDA-Public Use
  Company Number: PHHY2012CA036056

PATIENT
  Sex: Female

DRUGS (11)
  1. ACLASTA [Suspect]
     Indication: OSTEOPOROSIS
     Dosage: 5 mg, annually
     Route: 042
     Dates: start: 20100715
  2. ACLASTA [Suspect]
     Dosage: 5 mg, annually
     Route: 042
     Dates: start: 20110706
  3. ACLASTA [Suspect]
     Dosage: 5 mg, annually
     Route: 042
     Dates: start: 20120710
  4. TRIAMTERENE AND HYDROCHLOROTHIAZID [Concomitant]
  5. VITAMIN B [Concomitant]
  6. HYGROTON [Concomitant]
  7. SYNTHROID [Concomitant]
  8. CALCIUM [Concomitant]
  9. VITAMIN D [Concomitant]
  10. DYAZIDE [Concomitant]
  11. DIURETICS [Concomitant]
     Indication: FLUID RETENTION

REACTIONS (10)
  - Renal disorder [Unknown]
  - Fluid retention [Unknown]
  - Pruritus generalised [Not Recovered/Not Resolved]
  - Dry mouth [Not Recovered/Not Resolved]
  - Oedema peripheral [Not Recovered/Not Resolved]
  - Concomitant disease aggravated [Not Recovered/Not Resolved]
  - Body height decreased [Unknown]
  - Bone disorder [Unknown]
  - Adverse drug reaction [Unknown]
  - Infusion related reaction [None]
